FAERS Safety Report 6969236-X (Version None)
Quarter: 2010Q3

REPORT INFORMATION
  Report Type: 
  Country: None (occurrence: None)
  Receive Date: 20100907
  Receipt Date: 20100819
  Transmission Date: 20110219
  Serious: Yes (Hospitalization)
  Sender: FDA-Public Use
  Company Number: US-ASTRAZENECA-2010SE40653

PATIENT
  Age: 81 Year
  Sex: Female

DRUGS (1)
  1. ASTRAMORPH PF [Suspect]
     Indication: SPINAL ANAESTHESIA
     Route: 065

REACTIONS (2)
  - ARRHYTHMIA [None]
  - HYPOTHERMIA [None]
